FAERS Safety Report 9149667 (Version 4)
Quarter: 2014Q1

REPORT INFORMATION
  Report Type: Report from Study
  Country: DE (occurrence: DE)
  Receive Date: 20130308
  Receipt Date: 20140117
  Transmission Date: 20141002
  Serious: Yes (Hospitalization)
  Sender: FDA-Public Use
  Company Number: PHHO2012DE011074

PATIENT
  Sex: 0

DRUGS (3)
  1. ASS SANDOZ [Suspect]
     Indication: PROPHYLAXIS
     Dosage: 100 MG, QD
     Dates: end: 20120725
  2. INC424 [Suspect]
     Indication: MYELOFIBROSIS
     Dosage: 20 MG, BID
     Route: 048
     Dates: start: 20120126, end: 20120725
  3. INC424 [Suspect]
     Dosage: 40 MG, QD
     Route: 048
     Dates: start: 20120729

REACTIONS (4)
  - Neutropenia [Recovered/Resolved]
  - Thrombocytopenia [Recovered/Resolved]
  - Anaemia [Recovered/Resolved]
  - Epistaxis [Recovered/Resolved]
